FAERS Safety Report 7379079-3 (Version None)
Quarter: 2011Q1

REPORT INFORMATION
  Report Type: 
  Country: None (occurrence: None)
  Receive Date: 20110328
  Receipt Date: 20110322
  Transmission Date: 20110831
  Serious: Yes (Hospitalization, Other)
  Sender: FDA-Public Use
  Company Number: US-ABBOTT-09P-163-0574508-00

PATIENT
  Sex: Male
  Weight: 95.34 kg

DRUGS (14)
  1. FISH OIL [Concomitant]
     Indication: HYPERTENSION
     Route: 048
  2. PREDNISONE [Concomitant]
     Indication: RHEUMATOID ARTHRITIS
     Route: 048
  3. HUMIRA [Suspect]
     Indication: RHEUMATOID ARTHRITIS
     Route: 058
     Dates: start: 20050101, end: 20080101
  4. AMOXICILLIN [Concomitant]
     Indication: DENTAL CARE
     Dosage: 2 HOURS BEFORE DENTAL INTERVENTIONS
  5. ASCORBIC ACID [Concomitant]
     Indication: MEDICAL DIET
     Route: 048
  6. ASPIRIN [Concomitant]
     Indication: CARDIOVASCULAR EVENT PROPHYLAXIS
     Route: 048
  7. HONEY [Concomitant]
     Indication: PHARYNGEAL DISORDER
  8. NIASPAN [Concomitant]
     Indication: LOW DENSITY LIPOPROTEIN INCREASED
     Route: 048
  9. DIOVAN [Concomitant]
     Indication: HYPERTENSION
     Route: 048
  10. ORTHOVIST [Concomitant]
     Indication: ARTHROPATHY
     Route: 050
  11. HUMIRA [Suspect]
     Indication: OSTEOARTHRITIS
     Route: 058
     Dates: start: 20080301, end: 20090201
  12. UNKNOWN STEROID [Concomitant]
     Indication: OSTEOARTHRITIS
     Route: 050
  13. HUMIRA [Suspect]
     Route: 058
     Dates: start: 20090401
  14. ARAVA [Concomitant]
     Indication: PRODUCT USED FOR UNKNOWN INDICATION

REACTIONS (8)
  - SPINAL OSTEOARTHRITIS [None]
  - BURSITIS [None]
  - INTRACRANIAL HYPOTENSION [None]
  - ARTHRALGIA [None]
  - OSTEOARTHRITIS [None]
  - HYPERTENSION [None]
  - RHEUMATOID ARTHRITIS [None]
  - INTERVERTEBRAL DISC DEGENERATION [None]
